FAERS Safety Report 6681565-6 (Version None)
Quarter: 2010Q2

REPORT INFORMATION
  Report Type: 
  Country: None (occurrence: None)
  Receive Date: 20100414
  Receipt Date: 20100406
  Transmission Date: 20101027
  Serious: Yes (Hospitalization, Other)
  Sender: FDA-Public Use
  Company Number: PHHY2010GR21540

PATIENT
  Age: 31 Year
  Sex: Female

DRUGS (4)
  1. METOPROLOL TARTRATE [Suspect]
     Dosage: UNK
     Route: 048
  2. CALCIUM [Concomitant]
  3. FOLIC ACID [Concomitant]
  4. IRON [Concomitant]

REACTIONS (10)
  - CARDIAC FAILURE ACUTE [None]
  - CORONARY ARTERY DISSECTION [None]
  - DILATATION VENTRICULAR [None]
  - DRUG EXPOSURE DURING PREGNANCY [None]
  - INDUCED LABOUR [None]
  - MULTIPLE PREGNANCY [None]
  - MYOCARDIAL INFARCTION [None]
  - PREMATURE LABOUR [None]
  - VENTRICULAR DYSKINESIA [None]
  - VENTRICULAR HYPOKINESIA [None]
